FAERS Safety Report 8495644 (Version 2)
Quarter: 2013Q2

REPORT INFORMATION
  Report Type: Spontaneous
  Country: US (occurrence: US)
  Receive Date: 20120405
  Receipt Date: 20130507
  Transmission Date: 20140414
  Serious: Yes (Other)
  Sender: FDA-Public Use
  Company Number: US-ASTRAZENECA-2012SE20871

PATIENT
  Age: 674 Month
  Sex: Female

DRUGS (2)
  1. CRESTOR [Suspect]
     Route: 048
  2. PRAVACHOL [Concomitant]

REACTIONS (3)
  - Myocardial infarction [Unknown]
  - Adverse event [Unknown]
  - Drug dose omission [Unknown]
